FAERS Safety Report 4490548-6 (Version None)
Quarter: 2004Q4

REPORT INFORMATION
  Report Type: 
  Country: None (occurrence: None)
  Receive Date: 20041028
  Receipt Date: 20041025
  Transmission Date: 20050328
  Serious: No
  Sender: FDA-Public Use
  Company Number: TPA2004A01278

PATIENT
  Age: 65 Year
  Sex: Male

DRUGS (3)
  1. ACTOS [Suspect]
     Indication: DIABETES MELLITUS NON-INSULIN-DEPENDENT
     Dosage: 45 MG, 1 IN 1 D, PER ORAL
     Route: 048
     Dates: start: 20041011
  2. BISOPROLOL HCTZ (GALENIC/BISOPROLOL/HYDROCHLOROTHIAZIDE/) [Concomitant]
  3. BENICAR [Concomitant]

REACTIONS (1)
  - MEDICATION ERROR [None]
